FAERS Safety Report 17211691 (Version 1)
Quarter: 2019Q4

REPORT INFORMATION
  Report Type: Spontaneous
  Country: US (occurrence: US)
  Receive Date: 20191229
  Receipt Date: 20191229
  Transmission Date: 20200122
  Serious: Yes (Hospitalization)
  Sender: FDA-Public Use
  Company Number: US-ASTRAZENECA-2019SF81882

PATIENT
  Age: 299 Day
  Sex: Male
  Weight: 8.8 kg

DRUGS (6)
  1. SILDENAFIL. [Concomitant]
     Active Substance: SILDENAFIL
  2. ALBUTEROL SULFATE. [Concomitant]
     Active Substance: ALBUTEROL SULFATE
  3. FUROSEMIDE. [Concomitant]
     Active Substance: FUROSEMIDE
     Dosage: 10 MG/ML SOLUTION
  4. SYNAGIS [Suspect]
     Active Substance: PALIVIZUMAB
     Route: 030
  5. MULTIVITAMIN [Concomitant]
     Active Substance: VITAMINS
     Dosage: 9 MG/15 ML LIQUID
  6. OXYGEN. [Concomitant]
     Active Substance: OXYGEN

REACTIONS (1)
  - Respiratory syncytial virus infection [Unknown]

NARRATIVE: CASE EVENT DATE: 20191128
